FAERS Safety Report 7295313-2 (Version None)
Quarter: 2011Q1

REPORT INFORMATION
  Report Type: 
  Country: None (occurrence: None)
  Receive Date: 20110216
  Receipt Date: 20110131
  Transmission Date: 20110831
  Serious: Yes (Other)
  Sender: FDA-Public Use
  Company Number: FR-CELGENEUS-056-21880-11012033

PATIENT
  Sex: Male

DRUGS (9)
  1. PHENOXYMETHYL PENICILLIN [Concomitant]
     Indication: PROPHYLAXIS
     Route: 065
     Dates: start: 20060720
  2. RIVOTRIL [Concomitant]
     Route: 065
     Dates: start: 20061228
  3. LYRICA [Concomitant]
     Indication: PROPHYLAXIS
     Route: 065
     Dates: start: 20070206
  4. ZELITREX [Concomitant]
     Indication: PROPHYLAXIS
     Route: 065
     Dates: start: 20060720
  5. OXYCODONE HCL [Concomitant]
     Route: 065
     Dates: start: 20060628
  6. BACTRIM [Concomitant]
     Indication: INFECTION PROPHYLAXIS
     Route: 065
     Dates: start: 20070901
  7. OMEPRAZOLE [Concomitant]
     Indication: GASTRITIS PROPHYLAXIS
     Route: 065
     Dates: start: 20060720
  8. PARACETAMOL [Concomitant]
     Indication: PAIN
     Route: 065
     Dates: start: 20060601
  9. REVLIMID [Suspect]
     Indication: MULTIPLE MYELOMA
     Route: 048
     Dates: start: 20080412, end: 20100316

REACTIONS (1)
  - BASAL CELL CARCINOMA [None]
